FAERS Safety Report 21532526 (Version 8)
Quarter: 2024Q1

REPORT INFORMATION
  Report Type: Spontaneous
  Country: US (occurrence: US)
  Receive Date: 20221101
  Receipt Date: 20240130
  Transmission Date: 20240410
  Serious: Yes (Disabling, Other)
  Sender: FDA-Public Use
  Company Number: US-ORGANON-O2210USA002517

PATIENT
  Sex: Female
  Weight: 44.444 kg

DRUGS (4)
  1. SINGULAIR [Suspect]
     Active Substance: MONTELUKAST SODIUM
     Indication: Asthma
     Dosage: UNK
     Route: 048
     Dates: start: 1998
  2. SINGULAIR [Suspect]
     Active Substance: MONTELUKAST SODIUM
     Indication: Hypersensitivity
  3. SINGULAIR [Suspect]
     Active Substance: MONTELUKAST SODIUM
     Indication: Asthma
     Dosage: UNK
     Route: 048
     Dates: end: 2017
  4. SINGULAIR [Suspect]
     Active Substance: MONTELUKAST SODIUM
     Indication: Hypersensitivity

REACTIONS (60)
  - Neuropsychological symptoms [Not Recovered/Not Resolved]
  - Mast cell activation syndrome [Not Recovered/Not Resolved]
  - Obsessive-compulsive disorder [Not Recovered/Not Resolved]
  - Attention deficit hyperactivity disorder [Not Recovered/Not Resolved]
  - Vocal cord dysfunction [Not Recovered/Not Resolved]
  - Sleep disorder [Not Recovered/Not Resolved]
  - Intentional self-injury [Unknown]
  - Anxiety [Not Recovered/Not Resolved]
  - Depression [Not Recovered/Not Resolved]
  - Suicidal ideation [Recovering/Resolving]
  - Tunnel vision [Unknown]
  - Major depression [Unknown]
  - Anaphylactic reaction [Unknown]
  - Suicidal ideation [Unknown]
  - Suicidal ideation [Unknown]
  - Autonomic neuropathy [Unknown]
  - Colitis ulcerative [Unknown]
  - Dyscalculia [Not Recovered/Not Resolved]
  - Social avoidant behaviour [Not Recovered/Not Resolved]
  - Self-injurious ideation [Unknown]
  - Irritability [Not Recovered/Not Resolved]
  - Anger [Unknown]
  - Memory impairment [Unknown]
  - Emotional distress [Unknown]
  - Vision blurred [Unknown]
  - Panic attack [Unknown]
  - Hyperarousal [Unknown]
  - Post-traumatic stress disorder [Unknown]
  - Insomnia [Unknown]
  - Generalised anxiety disorder [Unknown]
  - Cognitive disorder [Unknown]
  - Somatic symptom disorder [Not Recovered/Not Resolved]
  - Fibromyalgia [Unknown]
  - Urticaria chronic [Unknown]
  - Weight decreased [Unknown]
  - Abdominal distension [Unknown]
  - Eructation [Unknown]
  - Burning sensation mucosal [Unknown]
  - Throat tightness [Unknown]
  - Oral pruritus [Unknown]
  - Pruritus [Unknown]
  - Brain fog [Unknown]
  - Palpitations [Unknown]
  - Anhedonia [Unknown]
  - Decreased appetite [Unknown]
  - Psychomotor hyperactivity [Unknown]
  - Restlessness [Unknown]
  - Paraesthesia [Unknown]
  - Mood swings [Unknown]
  - Sexual abuse [Unknown]
  - Abnormal dreams [Not Recovered/Not Resolved]
  - Flashback [Not Recovered/Not Resolved]
  - Intrusive thoughts [Not Recovered/Not Resolved]
  - Thinking abnormal [Unknown]
  - Throat irritation [Unknown]
  - Urticaria [Unknown]
  - Paraesthesia [Unknown]
  - Amnesia [Recovered/Resolved]
  - Fatigue [Unknown]
  - Gastrooesophageal reflux disease [Unknown]

NARRATIVE: CASE EVENT DATE: 19980101
